FAERS Safety Report 7990901-X (Version None)
Quarter: 2011Q4

REPORT INFORMATION
  Report Type: 
  Country: None (occurrence: None)
  Receive Date: 20111219
  Receipt Date: 20111212
  Transmission Date: 20120403
  Serious: Yes (Hospitalization, Other)
  Sender: FDA-Public Use
  Company Number: JP-B.I. PHARMACEUTICALS,INC./RIDGEFIELD-2011-DE-06139GD

PATIENT
  Sex: Female
  Weight: 51.4 kg

DRUGS (11)
  1. BASEN OD [Concomitant]
     Indication: DIABETES MELLITUS
     Dosage: 0.9 MG
     Route: 048
     Dates: start: 20050428, end: 20110921
  2. ASPIRIN [Concomitant]
     Indication: CEREBRAL INFARCTION
     Dosage: 100 MG
     Route: 048
     Dates: start: 20061101
  3. THEO-DUR [Concomitant]
     Indication: ASTHMA
     Dosage: 200 MG
     Route: 048
     Dates: start: 19930101
  4. MICARDIS [Suspect]
     Indication: HYPERTENSION
     Dosage: 20 MG
     Route: 048
     Dates: start: 20080821, end: 20090901
  5. MICARDIS [Suspect]
     Dosage: 40 MG
     Route: 048
     Dates: start: 20090902, end: 20101109
  6. PRAVASTATIN SODIUM [Concomitant]
     Indication: HYPERLIPIDAEMIA
     Dosage: 5 MG
     Route: 048
     Dates: start: 20100811
  7. ISOSORBIDE MONONITRATE [Concomitant]
     Indication: HYPERTENSION
     Dosage: 40 MG
     Route: 048
     Dates: start: 19930101
  8. LITHIUM CARBONATE [Suspect]
     Indication: BIPOLAR I DISORDER
     Dosage: 700 MG
     Route: 048
     Dates: start: 20030521, end: 20110330
  9. NATEGLINIDE [Concomitant]
     Indication: DIABETES MELLITUS
     Dosage: 90 MG
     Route: 048
     Dates: start: 20070510
  10. OMEPRAZOLE [Concomitant]
     Indication: GASTRIC ULCER
     Dosage: 20 MG
     Route: 048
     Dates: start: 20061201
  11. DILTIAZEM HCL [Concomitant]
     Indication: HYPERTENSION
     Dosage: 60 MG
     Route: 048
     Dates: start: 19930101

REACTIONS (3)
  - RENAL IMPAIRMENT [None]
  - TOXICITY TO VARIOUS AGENTS [None]
  - DEHYDRATION [None]
